FAERS Safety Report 4668097-1 (Version None)
Quarter: 2005Q2

REPORT INFORMATION
  Report Type: 
  Country: None (occurrence: None)
  Receive Date: 20050521
  Receipt Date: 20050307
  Transmission Date: 20051028
  Serious: Yes (Other)
  Sender: FDA-Public Use
  Company Number: PHNU2005DE01231

PATIENT
  Sex: Female

DRUGS (2)
  1. AREDIA [Suspect]
     Indication: OSTEOLYSIS
     Dosage: 15 MG, UNK
     Route: 042
  2. ZOMETA [Suspect]
     Indication: OSTEOLYSIS
     Dosage: 4 MG, UNK
     Route: 042

REACTIONS (2)
  - OSTEONECROSIS [None]
  - PAIN IN JAW [None]
